FAERS Safety Report 7862736-X (Version None)
Quarter: 2011Q4

REPORT INFORMATION
  Report Type: 
  Country: None (occurrence: None)
  Receive Date: 20111026
  Receipt Date: 20111012
  Transmission Date: 20120403
  Serious: Yes (Hospitalization)
  Sender: FDA-Public Use
  Company Number: 1000024860

PATIENT
  Age: 43 Year
  Sex: Female

DRUGS (9)
  1. OXAZEPAM [Concomitant]
  2. VITAMIN B1 TAB [Concomitant]
  3. CONTRAMAL (TRAMADOL) (50 MILLIGRAM, CAPSULES) [Suspect]
     Indication: TEETHING
     Dosage: 100 MG (50 MG, 2 IN 1 D), ORAL
     Route: 048
     Dates: start: 20110907, end: 20110910
  4. ZYPREXA [Suspect]
     Dosage: 7.5 MG (7.5 MG, 1 IN 1 D),
  5. VITAMIN B6 [Concomitant]
  6. HALDOL [Suspect]
     Dosage: 5 MG (5 MG, 1 IN 1 D)
  7. ESCITALOPRAM [Suspect]
     Indication: DEPRESSION
     Dosage: 1 DF (1 DOSAGE FORMS, 1 IN 1 D), ORAL
     Route: 048
     Dates: start: 20110713, end: 20110910
  8. ESCITALOPRAM [Suspect]
     Indication: ALCOHOLISM
     Dosage: 1 DF (1 DOSAGE FORMS, 1 IN 1 D), ORAL
     Route: 048
     Dates: start: 20110713, end: 20110910
  9. NICOBION (NICOTINAMIDE) [Concomitant]

REACTIONS (5)
  - SUICIDE ATTEMPT [None]
  - GRAND MAL CONVULSION [None]
  - TEETHING [None]
  - POLYDIPSIA [None]
  - BLOOD SODIUM DECREASED [None]
